FAERS Safety Report 6140136-0 (Version None)
Quarter: 2009Q2

REPORT INFORMATION
  Report Type: 
  Country: None (occurrence: None)
  Receive Date: 20090401
  Receipt Date: 20090330
  Transmission Date: 20091009
  Serious: Yes (Death, Disabling)
  Sender: FDA-Public Use
  Company Number: US-ASTRAZENECA-2008UW16059

PATIENT
  Age: 59 Year
  Sex: Male
  Weight: 102.5 kg

DRUGS (2)
  1. SEROQUEL [Suspect]
     Indication: SCHIZOPHRENIA
     Route: 048
     Dates: start: 20030820, end: 20070116
  2. ABILIFY [Concomitant]
     Dates: start: 20030820, end: 20060520

REACTIONS (7)
  - ARM AMPUTATION [None]
  - BLOOD CHOLESTEROL INCREASED [None]
  - CARDIAC DISORDER [None]
  - CARDIAC FAILURE [None]
  - CARDIAC FAILURE CONGESTIVE [None]
  - DIABETES MELLITUS [None]
  - INFLUENZA [None]
